FAERS Safety Report 25591855 (Version 1)
Quarter: 2025Q3

REPORT INFORMATION
  Report Type: Spontaneous
  Country: US (occurrence: US)
  Receive Date: 20250722
  Receipt Date: 20250722
  Transmission Date: 20251021
  Serious: No
  Sender: VANDA PHARMACEUTICALS
  Company Number: US-VANDA PHARMACEUTICALS, INC-2024TASUS007456

PATIENT
  Sex: Female
  Weight: 77.098 kg

DRUGS (1)
  1. HETLIOZ [Suspect]
     Active Substance: TASIMELTEON
     Indication: Sleep disorder
     Dosage: UNK, QD, ONCE EVERY EVENING
     Route: 048

REACTIONS (1)
  - Drug ineffective [Unknown]
